FAERS Safety Report 14816755 (Version 1)
Quarter: 2018Q2

REPORT INFORMATION
  Report Type: Spontaneous
  Country: JP (occurrence: JP)
  Receive Date: 20180426
  Receipt Date: 20180426
  Transmission Date: 20180711
  Serious: Yes (Other)
  Sender: FDA-Public Use
  Company Number: JP-GILEAD-2018-0334758

PATIENT

DRUGS (1)
  1. HARVONI [Suspect]
     Active Substance: LEDIPASVIR\SOFOSBUVIR
     Indication: HEPATITIS C
     Dosage: 1 DF, QD
     Route: 065

REACTIONS (12)
  - Stomatitis [Unknown]
  - Diarrhoea [Unknown]
  - Laryngeal discomfort [Unknown]
  - Pruritus [Unknown]
  - Gastrointestinal haemorrhage [Unknown]
  - Burning sensation [Unknown]
  - Renal impairment [Unknown]
  - Rash [Unknown]
  - Dyspepsia [Unknown]
  - Arthralgia [Unknown]
  - Fatigue [Unknown]
  - Headache [Unknown]
